FAERS Safety Report 15651593 (Version 2)
Quarter: 2018Q4

REPORT INFORMATION
  Report Type: Report from Study
  Country: US (occurrence: US)
  Receive Date: 20181123
  Receipt Date: 20181208
  Transmission Date: 20190205
  Serious: Yes (Hospitalization)
  Sender: FDA-Public Use
  Company Number: US-TAIHO ONCOLOGY  INC-EU-2018-02047

PATIENT
  Age: 62 Year
  Sex: Female
  Weight: 90.8 kg

DRUGS (5)
  1. JANUVIA [Concomitant]
     Active Substance: SITAGLIPTIN PHOSPHATE
  2. LONSURF [Suspect]
     Active Substance: TIPIRACIL HYDROCHLORIDE\TRIFLURIDINE
     Indication: COLON CANCER METASTATIC
     Dosage: CURRENT CYCLE 2 STARTED IN OCT/2018.?LONSURF CURRENTLY ON HOLD AND TO BE RESTARTED AT DOSE 55MG BID.
     Route: 048
     Dates: start: 201808, end: 201810
  3. GABAPENTIN. [Concomitant]
     Active Substance: GABAPENTIN
  4. GLIMEPIRIDE. [Concomitant]
     Active Substance: GLIMEPIRIDE
  5. PAXIL [Concomitant]
     Active Substance: PAROXETINE HYDROCHLORIDE

REACTIONS (13)
  - Infection [Recovered/Resolved]
  - Feeling cold [Unknown]
  - Cytopenia [Recovered/Resolved]
  - Poverty of speech [Recovered/Resolved]
  - Chills [Recovered/Resolved]
  - Blood glucose decreased [Not Recovered/Not Resolved]
  - Pyrexia [Recovered/Resolved]
  - Insomnia [Unknown]
  - Vomiting [Recovering/Resolving]
  - Night sweats [Recovered/Resolved]
  - Malaise [Not Recovered/Not Resolved]
  - Feeding disorder [Recovered/Resolved]
  - Stomatitis [Recovered/Resolved]

NARRATIVE: CASE EVENT DATE: 2018
